FAERS Safety Report 7627221-9 (Version None)
Quarter: 2011Q3

REPORT INFORMATION
  Report Type: 
  Country: None (occurrence: None)
  Receive Date: 20110721
  Receipt Date: 20110719
  Transmission Date: 20111222
  Serious: No
  Sender: FDA-Public Use
  Company Number: US-TEVA-291237USA

PATIENT
  Sex: Male
  Weight: 102.15 kg

DRUGS (1)
  1. PROAIR HFA [Suspect]
     Indication: DYSPNOEA
     Dosage: 2 PUFS 3-4 X QD PRN
     Route: 055
     Dates: start: 20110717

REACTIONS (1)
  - FLUSHING [None]
